FAERS Safety Report 4285970-7 (Version None)
Quarter: 2004Q1

REPORT INFORMATION
  Report Type: 
  Country: None (occurrence: None)
  Receive Date: 20040204
  Receipt Date: 20040204
  Transmission Date: 20041129
  Serious: Yes (Other)
  Sender: FDA-Public Use
  Company Number: None

PATIENT
  Age: 27 Year
  Sex: Female
  Weight: 56.6996 kg

DRUGS (1)
  1. PAXIL [Suspect]
     Indication: MOOD SWINGS
     Dosage: 1 TABLET 1 TIME DAI ORAL
     Route: 048

REACTIONS (4)
  - HALLUCINATION [None]
  - PARALYSIS [None]
  - TINNITUS [None]
  - VISUAL DISTURBANCE [None]
